FAERS Safety Report 8073904-9 (Version None)
Quarter: 2012Q1

REPORT INFORMATION
  Report Type: 
  Country: None (occurrence: None)
  Receive Date: 20120126
  Receipt Date: 20120123
  Transmission Date: 20120608
  Serious: No
  Sender: FDA-Public Use
  Company Number: US-BAYER-2012-007685

PATIENT
  Age: 69 Year
  Sex: Male

DRUGS (2)
  1. LEUKINE [Suspect]
     Indication: METASTASES TO BONE
  2. LEUKINE [Suspect]
     Indication: PROSTATE CANCER
     Dosage: UNK UNK, QD
     Dates: start: 20120121

REACTIONS (3)
  - INJECTION SITE PAIN [None]
  - INJECTION SITE SWELLING [None]
  - INJECTION SITE ERYTHEMA [None]
